FAERS Safety Report 6809853-0 (Version None)
Quarter: 2010Q2

REPORT INFORMATION
  Report Type: 
  Country: None (occurrence: None)
  Receive Date: 20100625
  Receipt Date: 20100615
  Transmission Date: 20101027
  Serious: Yes (Hospitalization)
  Sender: FDA-Public Use
  Company Number: 2010EU002435

PATIENT
  Age: 86 Year
  Sex: Male

DRUGS (2)
  1. PROTOPIC [Suspect]
     Indication: ECZEMA
     Dosage: 0.1 %, /D, TOPICAL
     Route: 061
     Dates: start: 20070501
  2. PROTOPIC [Suspect]
     Indication: PRURIGO
     Dosage: 0.1 %, /D, TOPICAL
     Route: 061
     Dates: start: 20070501

REACTIONS (2)
  - LUNG DISORDER [None]
  - OFF LABEL USE [None]
